FAERS Safety Report 16101292 (Version 1)
Quarter: 2019Q1

REPORT INFORMATION
  Report Type: Spontaneous
  Country: CA (occurrence: CA)
  Receive Date: 20190321
  Receipt Date: 20190321
  Transmission Date: 20190418
  Serious: Yes (Hospitalization)
  Sender: FDA-Public Use
  Company Number: CA-TEVA-2019-CA-1027080

PATIENT
  Age: 29 Year
  Sex: Female

DRUGS (2)
  1. PROGESTERONE. [Suspect]
     Active Substance: PROGESTERONE
     Dosage: 4 MILLIGRAM DAILY; INITIATED AFTER INJECTIONS, CONTINUED UNTIL THE 16TH WEEK OF PREGNANCY
     Route: 048
  2. PROGESTERONE. [Suspect]
     Active Substance: PROGESTERONE
     Indication: SUPPORTIVE CARE
     Dosage: 40 MILLIGRAM DAILY; BETWEEN THE 5TH AND 14TH GESTATIONAL WEEKS
     Route: 065

REACTIONS (6)
  - Mastication disorder [Recovered/Resolved]
  - Maternal exposure during pregnancy [Unknown]
  - Pyogenic granuloma [Recovered/Resolved]
  - Contraindicated product administered [Unknown]
  - Live birth [Unknown]
  - Speech disorder [Recovered/Resolved]
